FAERS Safety Report 5688320-4 (Version None)
Quarter: 2008Q1

REPORT INFORMATION
  Report Type: 
  Country: None (occurrence: None)
  Receive Date: 20080328
  Receipt Date: 20080328
  Transmission Date: 20080703
  Serious: No
  Sender: FDA-Public Use
  Company Number: None

PATIENT
  Sex: Female
  Weight: 106.1417 kg

DRUGS (4)
  1. TOPROL-XL [Suspect]
     Indication: HYPOTENSION
     Dosage: 50 MG ORAL
     Route: 048
     Dates: start: 20080201, end: 20080301
  2. COZAAR [Concomitant]
  3. NUVARING [Concomitant]
  4. CYMBALTA [Concomitant]

REACTIONS (1)
  - HYPOTENSION [None]
